FAERS Safety Report 24538246 (Version 1)
Quarter: 2024Q4

REPORT INFORMATION
  Report Type: Report from Study
  Country: JP (occurrence: JP)
  Receive Date: 20241023
  Receipt Date: 20241023
  Transmission Date: 20250115
  Serious: Yes (Hospitalization)
  Sender: ABBVIE
  Company Number: JP-ABBVIE-5449832

PATIENT
  Age: 82 Year
  Sex: Female

DRUGS (2)
  1. FOSCARBIDOPA\FOSLEVODOPA [Suspect]
     Active Substance: FOSCARBIDOPA\FOSLEVODOPA
     Indication: Parkinson^s disease
     Route: 058
     Dates: start: 20230920
  2. Carbidopa hydrate and levodopa [Concomitant]
     Indication: Parkinson^s disease
     Dosage: TIME INTERVAL: AS NECESSARY: MORNING: 2 TABLETS, DAYTIME: 1 TABLET ABOUT 5 TIMES, AS NEEDED
     Route: 048

REACTIONS (37)
  - Nightmare [Unknown]
  - Therapeutic product effect incomplete [Unknown]
  - Malaise [Unknown]
  - Wrong technique in device usage process [Unknown]
  - Infusion site haemorrhage [Unknown]
  - Infusion site pain [Not Recovered/Not Resolved]
  - Asthenia [Unknown]
  - Hallucination [Unknown]
  - Mobility decreased [Unknown]
  - Infusion site erythema [Not Recovered/Not Resolved]
  - Infusion site bruising [Not Recovered/Not Resolved]
  - Infusion site swelling [Not Recovered/Not Resolved]
  - Infusion site haemorrhage [Not Recovered/Not Resolved]
  - Discouragement [Recovering/Resolving]
  - Dyskinesia [Recovered/Resolved]
  - Listless [Unknown]
  - Infusion site scar [Unknown]
  - Mobility decreased [Recovered/Resolved]
  - Therapeutic product effect incomplete [Unknown]
  - Infusion site paraesthesia [Unknown]
  - Wrong technique in device usage process [Unknown]
  - Infusion site pain [Unknown]
  - Mobility decreased [Unknown]
  - Drug ineffective [Unknown]
  - Infusion site induration [Unknown]
  - Infusion site erythema [Recovering/Resolving]
  - Infusion site bruising [Unknown]
  - Infusion site pain [Unknown]
  - Infusion site induration [Not Recovered/Not Resolved]
  - Musculoskeletal stiffness [Unknown]
  - Infusion site discharge [Unknown]
  - Anxiety [Unknown]
  - Depressed mood [Recovering/Resolving]
  - Mobility decreased [Unknown]
  - Vitamin B12 deficiency [Unknown]
  - Muscular weakness [Unknown]
  - Medication error [Unknown]

NARRATIVE: CASE EVENT DATE: 20231001
